FAERS Safety Report 23133948 (Version 1)
Quarter: 2023Q4

REPORT INFORMATION
  Report Type: Report from Study
  Country: MX (occurrence: MX)
  Receive Date: 20231101
  Receipt Date: 20231101
  Transmission Date: 20240109
  Serious: Yes (Other)
  Sender: FDA-Public Use
  Company Number: MX-002147023-NVSC2023MX231307

PATIENT
  Sex: Female

DRUGS (1)
  1. GILENYA [Suspect]
     Active Substance: FINGOLIMOD HYDROCHLORIDE
     Indication: Multiple sclerosis
     Dosage: 0.5 MG, QD, (BY MOUTH)
     Route: 048

REACTIONS (12)
  - Ovarian germ cell teratoma [Unknown]
  - Suicide attempt [Unknown]
  - Chest pain [Recovered/Resolved]
  - Nasal congestion [Unknown]
  - Sleep disorder [Unknown]
  - Emotional disorder [Unknown]
  - Hypotension [Unknown]
  - Mood altered [Unknown]
  - Gait disturbance [Unknown]
  - Anxiety [Unknown]
  - Depressive symptom [Unknown]
  - Panic attack [Unknown]
